FAERS Safety Report 19213762 (Version 1)
Quarter: 2021Q2

REPORT INFORMATION
  Report Type: Other
  Country: IL (occurrence: IL)
  Receive Date: 20210504
  Receipt Date: 20210504
  Transmission Date: 20210717
  Serious: Yes (Hospitalization)
  Sender: FDA-Public Use
  Company Number: IL-B.BRAUN MEDICAL INC.-2110200

PATIENT
  Age: 30 Year
  Sex: Female

DRUGS (5)
  1. PREDNISONE. [Concomitant]
     Active Substance: PREDNISONE
  2. NIFEDIPINE. [Concomitant]
     Active Substance: NIFEDIPINE
  3. NAPROXEN. [Concomitant]
     Active Substance: NAPROXEN
  4. SODIUM CHLORIDE INJECTIONS USP 0264?7800?00 0264?7800?10 [Suspect]
     Active Substance: SODIUM CHLORIDE
     Indication: DEHYDRATION
     Route: 042
  5. AZATHIOPRINE. [Concomitant]
     Active Substance: AZATHIOPRINE

REACTIONS (2)
  - Hypertensive emergency [Recovered/Resolved]
  - Pulmonary oedema [None]
